FAERS Safety Report 7470783-5 (Version None)
Quarter: 2011Q2

REPORT INFORMATION
  Report Type: 
  Country: None (occurrence: None)
  Receive Date: 20110510
  Receipt Date: 20110404
  Transmission Date: 20111010
  Serious: No
  Sender: FDA-Public Use
  Company Number: US-BAYER-2011-029780

PATIENT
  Sex: Female
  Weight: 68 kg

DRUGS (1)
  1. ALEVE (CAPLET) [Suspect]
     Dosage: 660 MG, ONCE
     Route: 048
     Dates: start: 20110404, end: 20110404

REACTIONS (1)
  - NO ADVERSE EVENT [None]
